FAERS Safety Report 10026802 (Version 1)
Quarter: 2014Q1

REPORT INFORMATION
  Report Type: Spontaneous
  Country: AU (occurrence: None)
  Receive Date: 20140318
  Receipt Date: 20140318
  Transmission Date: 20141002
  Serious: Yes (Hospitalization)
  Sender: FDA-Public Use
  Company Number: VAL_02560_2013

PATIENT
  Age: 67 Year
  Sex: Male

DRUGS (7)
  1. METOPROLOL [Suspect]
     Indication: PRODUCT USED FOR UNKNOWN INDICATION
  2. AMLODIPINE [Suspect]
     Indication: PRODUCT USED FOR UNKNOWN INDICATION
  3. RAMIPRIL [Suspect]
     Indication: PRODUCT USED FOR UNKNOWN INDICATION
  4. ASPIRIN ( UNKNOWN) [Concomitant]
  5. EZETIMIBE W SIMVASTATIN ( UNKNOWN) [Concomitant]
  6. TRAMADOL HYDROCHLORIDE ( UNKNOWN) [Concomitant]
  7. THIAMINE ( UNKNOWN) [Concomitant]

REACTIONS (1)
  - Syncope [None]
